FAERS Safety Report 5797126-7 (Version None)
Quarter: 2008Q3

REPORT INFORMATION
  Report Type: 
  Country: None (occurrence: None)
  Receive Date: 20080701
  Receipt Date: 20080623
  Transmission Date: 20090109
  Serious: Yes (Other)
  Sender: FDA-Public Use
  Company Number: PHEH2008US02124

PATIENT
  Sex: Female
  Weight: 72.2 kg

DRUGS (1)
  1. STI571/CGP57148B T35717+CAPS [Suspect]
     Indication: GASTROINTESTINAL STROMAL TUMOUR
     Dosage: 400 MG, QD
     Route: 048
     Dates: start: 20001001

REACTIONS (6)
  - CATARACT [None]
  - CORNEAL DISORDER [None]
  - HERPES ZOSTER [None]
  - MACULAR DEGENERATION [None]
  - RETINAL DISORDER [None]
  - TRIGEMINAL NERVE DISORDER [None]
